FAERS Safety Report 7748350-5 (Version None)
Quarter: 2011Q3

REPORT INFORMATION
  Report Type: 
  Country: None (occurrence: None)
  Receive Date: 20110913
  Receipt Date: 20110908
  Transmission Date: 20111222
  Serious: Yes (Other)
  Sender: FDA-Public Use
  Company Number: PHHY2011CA80611

PATIENT
  Sex: Female

DRUGS (2)
  1. ZOLEDRONOC ACID [Suspect]
     Indication: OSTEOPOROSIS
     Dosage: UNK
     Route: 042
     Dates: start: 20110831
  2. TYLENOL-500 [Concomitant]

REACTIONS (4)
  - SYNCOPE [None]
  - GAIT DISTURBANCE [None]
  - FATIGUE [None]
  - MYALGIA [None]
